FAERS Safety Report 15610054 (Version 3)
Quarter: 2018Q4

REPORT INFORMATION
  Report Type: Report from Study
  Country: None (occurrence: GB)
  Receive Date: 20181113
  Receipt Date: 20181217
  Transmission Date: 20190205
  Serious: Yes (Hospitalization, Other)
  Sender: FDA-Public Use
  Company Number: GB-ABBVIE-18K-167-2551414-00

PATIENT
  Age: 57 Year
  Sex: Female
  Weight: 124 kg

DRUGS (3)
  1. HUMIRA [Suspect]
     Active Substance: ADALIMUMAB
     Indication: SARCOIDOSIS
     Route: 058
     Dates: start: 20160930, end: 20180814
  2. LISINOPRIL. [Concomitant]
     Active Substance: LISINOPRIL
     Indication: HYPERTENSION
     Route: 048
     Dates: start: 20170105, end: 20180817
  3. CO AMOXICLAV [Concomitant]
     Active Substance: AMOXICILLIN\CLAVULANIC ACID
     Indication: CELLULITIS
     Dosage: 500/25
     Route: 048
     Dates: start: 20180815, end: 20180817

REACTIONS (2)
  - Renal failure [Recovering/Resolving]
  - Cellulitis [Not Recovered/Not Resolved]

NARRATIVE: CASE EVENT DATE: 20180814
